FAERS Safety Report 6038570-2 (Version None)
Quarter: 2009Q1

REPORT INFORMATION
  Report Type: 
  Country: None (occurrence: None)
  Receive Date: 20090113
  Receipt Date: 20080930
  Transmission Date: 20090719
  Serious: No
  Sender: FDA-Public Use
  Company Number: 2008BM000184

PATIENT
  Age: 33 Year
  Sex: Female
  Weight: 67.7 kg

DRUGS (6)
  1. KUVAN          (SAPROPTERIN DIHYDROCHLORIDE) [Suspect]
     Indication: PHENYLKETONURIA
     Dosage: 1400 MG;QD;PO
     Route: 048
     Dates: start: 20080408
  2. ONDANSETRON HYDROCHLORIDE [Concomitant]
  3. PHLEXY-10 [Concomitant]
  4. PROCHLORPERAZINE [Concomitant]
  5. MAXAMUM XP [Concomitant]
  6. PHENYLADE [Concomitant]

REACTIONS (2)
  - NAUSEA [None]
  - VOMITING [None]
